FAERS Safety Report 22046644 (Version 1)
Quarter: 2023Q1

REPORT INFORMATION
  Report Type: Spontaneous
  Country: US (occurrence: US)
  Receive Date: 20230228
  Receipt Date: 20230228
  Transmission Date: 20230418
  Serious: Yes (Other)
  Sender: FDA-Public Use
  Company Number: US-NOVOPROD-1025694

PATIENT
  Sex: Female

DRUGS (1)
  1. OZEMPIC [Suspect]
     Active Substance: SEMAGLUTIDE
     Indication: Type 2 diabetes mellitus
     Dosage: 0.25 MG
     Route: 058

REACTIONS (5)
  - Tunnel vision [Not Recovered/Not Resolved]
  - Sinus pain [Not Recovered/Not Resolved]
  - Injection site haemorrhage [Unknown]
  - Nausea [Unknown]
  - Diarrhoea [Unknown]
